FAERS Safety Report 7002350-1 (Version None)
Quarter: 2010Q3

REPORT INFORMATION
  Report Type: 
  Country: None (occurrence: None)
  Receive Date: 20100920
  Receipt Date: 20090908
  Transmission Date: 20110219
  Serious: Yes (Other)
  Sender: FDA-Public Use
  Company Number: US-ASTRAZENECA-2009UW13311

PATIENT
  Age: 23 Year
  Sex: Female

DRUGS (6)
  1. SEROQUEL [Suspect]
     Indication: ANXIETY
     Route: 048
     Dates: start: 20010101
  2. SEROQUEL [Suspect]
     Indication: PANIC ATTACK
     Route: 048
     Dates: start: 20010101
  3. RISPERDAL [Concomitant]
     Indication: BIPOLAR DISORDER
     Dates: start: 20031009
  4. ZYPREXA [Concomitant]
     Indication: BIPOLAR DISORDER
     Dates: start: 20031009
  5. DEPAKOTE [Concomitant]
     Indication: DEPRESSION
     Dates: start: 20010101
  6. DEPAKOTE [Concomitant]
     Indication: ANXIETY DISORDER
     Dates: start: 20010101

REACTIONS (3)
  - DIZZINESS [None]
  - JOINT SPRAIN [None]
  - TYPE 2 DIABETES MELLITUS [None]
